FAERS Safety Report 4401697-2 (Version None)
Quarter: 2004Q3

REPORT INFORMATION
  Report Type: 
  Country: None (occurrence: None)
  Receive Date: 20040714
  Receipt Date: 20040625
  Transmission Date: 20050211
  Serious: Yes (Hospitalization, Other)
  Sender: FDA-Public Use
  Company Number: US_0406103886

PATIENT
  Sex: Male

DRUGS (1)
  1. FLUOXETINE HCL [Suspect]

REACTIONS (8)
  - BLOOD PH DECREASED [None]
  - DRUG EXPOSURE DURING PREGNANCY [None]
  - DRUG LEVEL INCREASED [None]
  - ENCEPHALOPATHY NEONATAL [None]
  - HYPERTONIA NEONATAL [None]
  - NEONATAL DISORDER [None]
  - PCO2 INCREASED [None]
  - PO2 DECREASED [None]
